FAERS Safety Report 6014394-7 (Version None)
Quarter: 2008Q4

REPORT INFORMATION
  Report Type: 
  Country: None (occurrence: None)
  Receive Date: 20081219
  Receipt Date: 20080529
  Transmission Date: 20090506
  Serious: No
  Sender: FDA-Public Use
  Company Number: A0730173A

PATIENT
  Age: 73 Year
  Sex: Male

DRUGS (5)
  1. AVODART [Suspect]
     Route: 065
  2. BENICAR [Concomitant]
  3. LIPITOR [Concomitant]
  4. ZETIA [Concomitant]
  5. TOPROL-XL [Concomitant]

REACTIONS (1)
  - NIPPLE PAIN [None]
